FAERS Safety Report 25844788 (Version 3)
Quarter: 2025Q4

REPORT INFORMATION
  Report Type: Report from Study
  Country: US (occurrence: US)
  Receive Date: 20250925
  Receipt Date: 20251016
  Transmission Date: 20260117
  Serious: Yes (Hospitalization)
  Sender: BOEHRINGER INGELHEIM
  Company Number: US-BoehringerIngelheim-2025-BI-088504

PATIENT
  Age: 70 Year
  Sex: Female

DRUGS (5)
  1. OFEV [Suspect]
     Active Substance: NINTEDANIB
     Indication: Idiopathic pulmonary fibrosis
  2. OFEV [Suspect]
     Active Substance: NINTEDANIB
     Dates: start: 20250805, end: 20250812
  3. OFEV [Suspect]
     Active Substance: NINTEDANIB
  4. OFEV [Suspect]
     Active Substance: NINTEDANIB
     Dates: start: 20250812
  5. ISONIAZID [Suspect]
     Active Substance: ISONIAZID
     Indication: Product used for unknown indication

REACTIONS (45)
  - Chromaturia [Unknown]
  - Dizziness [Unknown]
  - Dehydration [Not Recovered/Not Resolved]
  - Anal haemorrhage [Recovering/Resolving]
  - Diarrhoea [Recovering/Resolving]
  - Epistaxis [Recovered/Resolved]
  - Feeling abnormal [Not Recovered/Not Resolved]
  - Feeling abnormal [Recovered/Resolved]
  - Chest pain [Unknown]
  - Palpitations [Unknown]
  - Dry mouth [Unknown]
  - Nausea [Unknown]
  - Asthenia [Unknown]
  - Constipation [Not Recovered/Not Resolved]
  - Rectal haemorrhage [Unknown]
  - Weight decreased [Unknown]
  - Faeces hard [Unknown]
  - Rhinorrhoea [Unknown]
  - Haemorrhage [Recovered/Resolved]
  - Lung disorder [Unknown]
  - Gastrointestinal pain [Unknown]
  - Blood cholesterol increased [Unknown]
  - Tinnitus [Unknown]
  - Hepatic pain [Unknown]
  - Infection [Unknown]
  - Sputum increased [Unknown]
  - Rectal haemorrhage [Unknown]
  - Erythema [Unknown]
  - Productive cough [Unknown]
  - Headache [Not Recovered/Not Resolved]
  - Rash [Unknown]
  - Fatigue [Unknown]
  - Respiratory tract congestion [Unknown]
  - Sinusitis [Unknown]
  - Hypertension [Unknown]
  - Eczema [Unknown]
  - Amnesia [Unknown]
  - Proctalgia [Unknown]
  - Frequent bowel movements [Unknown]
  - Anorectal discomfort [Unknown]
  - Dermatitis [Unknown]
  - Insomnia [Not Recovered/Not Resolved]
  - Liver function test increased [Unknown]
  - White blood cell count increased [Unknown]
  - Decreased appetite [Unknown]

NARRATIVE: CASE EVENT DATE: 20250801
